FAERS Safety Report 8697826 (Version 2)
Quarter: 2012Q4

REPORT INFORMATION
  Report Type: 
  Country: US (occurrence: US)
  Receive Date: 20120801
  Receipt Date: 20120919
  Transmission Date: 20130627
  Serious: No
  Sender: FDA-Public Use
  Company Number: US-ASTRAZENECA-2012SE47935

PATIENT
  Age: 54 Year
  Sex: Female

DRUGS (2)
  1. SYMBICORT [Suspect]
     Indication: PERTUSSIS
     Dosage: 2 puffs twice daily
     Route: 055
     Dates: start: 201205
  2. SYMBICORT [Suspect]
     Indication: DYSPNOEA
     Dosage: 2 puffs twice daily
     Route: 055
     Dates: start: 201205

REACTIONS (3)
  - Pertussis [Unknown]
  - Intentional drug misuse [Unknown]
  - Off label use [Unknown]
